FAERS Safety Report 11165690 (Version 1)
Quarter: 2015Q2

REPORT INFORMATION
  Report Type: Spontaneous
  Country: US (occurrence: None)
  Receive Date: 20150603
  Receipt Date: 20150603
  Transmission Date: 20150821
  Serious: Yes (Other)
  Sender: FDA-Public Use
  Company Number: None

PATIENT
  Age: 33 Year
  Sex: Male
  Weight: 68.04 kg

DRUGS (1)
  1. MUCINEX DM [Suspect]
     Active Substance: DEXTROMETHORPHAN HYDROBROMIDE\GUAIFENESIN
     Indication: LUNG DISORDER
     Dosage: 2 PILLS
     Route: 048
     Dates: start: 20150520

REACTIONS (3)
  - Feeling hot [None]
  - Paralysis [None]
  - Cardiac disorder [None]

NARRATIVE: CASE EVENT DATE: 20150520
